FAERS Safety Report 17855235 (Version 1)
Quarter: 2020Q2

REPORT INFORMATION
  Report Type: Spontaneous
  Country: US (occurrence: US)
  Receive Date: 20200603
  Receipt Date: 20200603
  Transmission Date: 20200714
  Serious: No
  Sender: FDA-Public Use
  Company Number: None

PATIENT
  Age: 42 Year
  Sex: Female
  Weight: 51.75 kg

DRUGS (1)
  1. CAPECITABINE. [Suspect]
     Active Substance: CAPECITABINE
     Indication: BREAST CANCER
     Dosage: ?          QUANTITY:6 TABLET(S);?
     Route: 048

REACTIONS (4)
  - Palmar-plantar erythrodysaesthesia syndrome [None]
  - White blood cells urine positive [None]
  - Renal pain [None]
  - Bladder pain [None]

NARRATIVE: CASE EVENT DATE: 20200101
